FAERS Safety Report 4997615-9 (Version None)
Quarter: 2006Q1

REPORT INFORMATION
  Report Type: 
  Country: None (occurrence: None)
  Receive Date: 20060315
  Receipt Date: 20060113
  Transmission Date: 20060701
  Serious: Yes (Other)
  Sender: FDA-Public Use
  Company Number: 432710

PATIENT
  Sex: Female

DRUGS (7)
  1. BONIVA [Suspect]
     Dates: start: 20051115
  2. LASIX [Concomitant]
  3. KLOR-CON [Concomitant]
  4. SOTALOL HYDROCHLORIDE [Concomitant]
  5. ASPIRIN [Concomitant]
  6. PLAVIX [Concomitant]
  7. OXYCODAN (ASPIRIN/OXYCODONE) [Concomitant]

REACTIONS (2)
  - PAIN IN EXTREMITY [None]
  - SKIN ULCER [None]
